FAERS Safety Report 13030521 (Version 2)
Quarter: 2017Q1

REPORT INFORMATION
  Report Type: Spontaneous
  Country: NL (occurrence: NL)
  Receive Date: 20161215
  Receipt Date: 20170109
  Transmission Date: 20170428
  Serious: Yes (Death, Hospitalization)
  Sender: FDA-Public Use
  Company Number: NL-JNJFOC-20161210233

PATIENT
  Age: 62 Year
  Sex: Male
  Weight: 74.4 kg

DRUGS (1)
  1. IMBRUVICA [Suspect]
     Active Substance: IBRUTINIB
     Indication: CHRONIC LYMPHOCYTIC LEUKAEMIA
     Route: 048
     Dates: end: 20160729

REACTIONS (9)
  - Haemorrhoids [Unknown]
  - Pyrexia [Unknown]
  - Death [Fatal]
  - Cough [Unknown]
  - Oral mucosal blistering [Unknown]
  - Vomiting [Unknown]
  - Glossitis [Recovering/Resolving]
  - Wound [Unknown]
  - Flank pain [Unknown]

NARRATIVE: CASE EVENT DATE: 201512
